FAERS Safety Report 6400790-2 (Version None)
Quarter: 2009Q4

REPORT INFORMATION
  Report Type: 
  Country: None (occurrence: None)
  Receive Date: 20091008
  Receipt Date: 20090925
  Transmission Date: 20100525
  Serious: Yes (Other)
  Sender: FDA-Public Use
  Company Number: 8026271

PATIENT
  Age: 24 Year
  Sex: Female

DRUGS (4)
  1. KEPPRA [Suspect]
     Indication: GRAND MAL CONVULSION
     Dosage: 750 MG /D PO
     Route: 048
     Dates: start: 20070227, end: 20070329
  2. KEPPRA [Suspect]
     Indication: GRAND MAL CONVULSION
     Dosage: 500 MG 2/D PO
     Route: 048
     Dates: start: 20070330
  3. KEPPRA [Suspect]
     Indication: GRAND MAL CONVULSION
     Dosage: 750 MG 2/D PO
     Route: 048
  4. SEPRAM [Concomitant]

REACTIONS (11)
  - ABORTION SPONTANEOUS [None]
  - DRUG EXPOSURE DURING PREGNANCY [None]
  - FALL [None]
  - FATIGUE [None]
  - GRAND MAL CONVULSION [None]
  - HEAD INJURY [None]
  - LOCAL SWELLING [None]
  - LOSS OF CONSCIOUSNESS [None]
  - MUSCLE RIGIDITY [None]
  - PRE-ECLAMPSIA [None]
  - PREGNANCY [None]
